FAERS Safety Report 22188079 (Version 1)
Quarter: 2023Q2

REPORT INFORMATION
  Report Type: Report from Study
  Country: CA (occurrence: CA)
  Receive Date: 20230408
  Receipt Date: 20230408
  Transmission Date: 20230722
  Serious: Yes (Other)
  Sender: FDA-Public Use
  Company Number: CA-002147023-NVSC2022CA265608

PATIENT
  Age: 43 Year
  Sex: Female

DRUGS (2)
  1. HYRIMOZ [Suspect]
     Active Substance: ADALIMUMAB-ADAZ
     Indication: Ankylosing spondylitis
     Dosage: 40 MG
     Route: 058
     Dates: start: 20221206
  2. HYRIMOZ [Suspect]
     Active Substance: ADALIMUMAB-ADAZ
     Dosage: 40 MG, Q2W
     Route: 058

REACTIONS (8)
  - Lupus-like syndrome [Unknown]
  - Periorbital swelling [Unknown]
  - Photophobia [Unknown]
  - Fatigue [Unknown]
  - Ocular discomfort [Unknown]
  - Eye swelling [Unknown]
  - Product dispensing error [Unknown]
  - Wrong device used [Unknown]
